FAERS Safety Report 6633778-7 (Version None)
Quarter: 2010Q1

REPORT INFORMATION
  Report Type: 
  Country: None (occurrence: None)
  Receive Date: 20100315
  Receipt Date: 20100304
  Transmission Date: 20100710
  Serious: Yes (Hospitalization)
  Sender: FDA-Public Use
  Company Number: CA-JNJFOC-20090301490

PATIENT
  Age: 37 Year
  Sex: Male
  Weight: 67 kg

DRUGS (1)
  1. REMICADE [Suspect]
     Indication: COLITIS ULCERATIVE
     Dosage: 3 INFUSION
     Route: 042

REACTIONS (5)
  - GASTRIC DISORDER [None]
  - HYPERTHYROIDISM [None]
  - INTESTINAL OPERATION [None]
  - THYROID MASS [None]
  - TUBERCULOSIS [None]
